FAERS Safety Report 13700250 (Version 2)
Quarter: 2017Q4

REPORT INFORMATION
  Report Type: Spontaneous
  Country: US (occurrence: US)
  Receive Date: 20170629
  Receipt Date: 20171229
  Transmission Date: 20180320
  Serious: Yes (Life-Threatening, Other)
  Sender: FDA-Public Use
  Company Number: US-SUN PHARMACEUTICAL INDUSTRIES LTD-2017US-144101

PATIENT
  Age: 66 Year
  Sex: Female

DRUGS (1)
  1. FLECAINIDE ACETATE. [Suspect]
     Active Substance: FLECAINIDE ACETATE
     Indication: ATRIAL TACHYCARDIA
     Dosage: 100 MG, BID
     Route: 048

REACTIONS (2)
  - Left ventricular dysfunction [Recovered/Resolved]
  - Cardiac failure [Recovered/Resolved]
